FAERS Safety Report 20691780 (Version 1)
Quarter: 2022Q2

REPORT INFORMATION
  Report Type: Spontaneous
  Country: US (occurrence: None)
  Receive Date: 20220407
  Receipt Date: 20220407
  Transmission Date: 20220721
  Serious: No
  Sender: FDA-Public Use
  Company Number: None

PATIENT
  Age: 72 Year
  Sex: Male

DRUGS (1)
  1. OMEPRAZOLE [Suspect]
     Active Substance: OMEPRAZOLE
     Indication: Dyspepsia
     Dosage: FREQUENCY : DAILY;?
     Route: 048

REACTIONS (3)
  - Glomerular filtration rate decreased [None]
  - Ischaemic nephropathy [None]
  - Therapy cessation [None]

NARRATIVE: CASE EVENT DATE: 20211019
